APPROVED DRUG PRODUCT: PENTAMIDINE ISETHIONATE
Active Ingredient: PENTAMIDINE ISETHIONATE
Strength: 300MG/VIAL
Dosage Form/Route: INJECTABLE;INJECTION
Application: A074303 | Product #001
Applicant: WATSON LABORATORIES INC
Approved: Aug 17, 1995 | RLD: No | RS: No | Type: DISCN